FAERS Safety Report 11304806 (Version 2)
Quarter: 2015Q3

REPORT INFORMATION
  Report Type: Report from Study
  Country: US (occurrence: US)
  Receive Date: 20150723
  Receipt Date: 20150727
  Transmission Date: 20151125
  Serious: Yes (Death, Hospitalization, Other)
  Sender: FDA-Public Use
  Company Number: US-ALEXION PHARMACEUTICALS INC.-A201502630

PATIENT

DRUGS (1)
  1. SOLIRIS [Suspect]
     Active Substance: ECULIZUMAB
     Indication: HAEMOLYTIC URAEMIC SYNDROME
     Route: 042

REACTIONS (11)
  - Hypertension [Unknown]
  - Incorrect dose administered [Unknown]
  - Proteinuria [Unknown]
  - Pulmonary haemorrhage [Unknown]
  - Pulmonary thrombosis [Unknown]
  - Venoocclusive disease [Unknown]
  - Renal impairment [Unknown]
  - Blood lactate dehydrogenase increased [Unknown]
  - Death [Fatal]
  - Hyperbilirubinaemia [Unknown]
  - Red blood cell schistocytes present [Not Recovered/Not Resolved]

NARRATIVE: CASE EVENT DATE: 20150713
